FAERS Safety Report 5403974-5 (Version None)
Quarter: 2007Q3

REPORT INFORMATION
  Report Type: 
  Country: None (occurrence: None)
  Receive Date: 20070802
  Receipt Date: 20070713
  Transmission Date: 20080115
  Serious: Yes (Hospitalization)
  Sender: FDA-Public Use
  Company Number: B0456555A

PATIENT
  Age: 55 Year
  Sex: Male
  Weight: 67 kg

DRUGS (3)
  1. CEFAZOLIN [Suspect]
     Indication: INFECTION PROPHYLAXIS
     Dosage: 1G FOUR TIMES PER DAY
     Route: 042
     Dates: start: 20070115, end: 20070115
  2. TETRACAINE POLYGYL STERILE OPHTHALMIC SOLUTION [Suspect]
     Dosage: 12MG THREE TIMES PER DAY
     Route: 050
     Dates: start: 20070115, end: 20070115
  3. LIDOCAINE [Concomitant]
     Indication: DRUG USE FOR UNKNOWN INDICATION
     Route: 065

REACTIONS (8)
  - ANAPHYLACTIC SHOCK [None]
  - BLOOD PRESSURE DECREASED [None]
  - DEPRESSED LEVEL OF CONSCIOUSNESS [None]
  - FACE OEDEMA [None]
  - GENERALISED OEDEMA [None]
  - HYPOAESTHESIA FACIAL [None]
  - OEDEMA PERIPHERAL [None]
  - VISION BLURRED [None]
